FAERS Safety Report 16841756 (Version 3)
Quarter: 2020Q1

REPORT INFORMATION
  Report Type: Report from Study
  Country: IN (occurrence: IN)
  Receive Date: 20190923
  Receipt Date: 20200211
  Transmission Date: 20200409
  Serious: Yes (Other)
  Sender: FDA-Public Use
  Company Number: PHHY2019IN217751

PATIENT
  Age: 33 Year
  Sex: Female

DRUGS (4)
  1. SCAPHO [Suspect]
     Active Substance: SECUKINUMAB
     Indication: ANKYLOSING SPONDYLITIS
     Dosage: 150 MG, QW
     Route: 058
     Dates: start: 20190907
  2. SCAPHO [Suspect]
     Active Substance: SECUKINUMAB
     Indication: PSORIATIC ARTHROPATHY
     Dosage: 150 MG, QW
     Route: 058
     Dates: start: 20190913
  3. SCAPHO [Suspect]
     Active Substance: SECUKINUMAB
     Dosage: 150 MG, QMO
     Route: 065
     Dates: start: 20191229
  4. SCAPHO [Suspect]
     Active Substance: SECUKINUMAB
     Dosage: 150 MG, QW
     Route: 058
     Dates: start: 20190926

REACTIONS (3)
  - Syncope [Recovered/Resolved]
  - Pain [Unknown]
  - Product prescribing error [Unknown]

NARRATIVE: CASE EVENT DATE: 20190913
